FAERS Safety Report 22140931 (Version 1)
Quarter: 2023Q1

REPORT INFORMATION
  Report Type: Spontaneous
  Country: US (occurrence: US)
  Receive Date: 20230327
  Receipt Date: 20230327
  Transmission Date: 20230417
  Serious: No
  Sender: FDA-Public Use
  Company Number: US-JNJFOC-20230334331

PATIENT
  Age: 7 Month
  Sex: Male

DRUGS (1)
  1. CHILDRENS MOTRIN [Suspect]
     Active Substance: IBUPROFEN
     Indication: Headache
     Route: 065
     Dates: start: 20230312, end: 202303

REACTIONS (3)
  - Adverse event [Recovered/Resolved]
  - Product administered to patient of inappropriate age [Unknown]
  - Product administration error [Unknown]

NARRATIVE: CASE EVENT DATE: 20230312
